FAERS Safety Report 13717871 (Version 4)
Quarter: 2018Q1

REPORT INFORMATION
  Report Type: Report from Study
  Country: DE (occurrence: DE)
  Receive Date: 20170705
  Receipt Date: 20180223
  Transmission Date: 20180508
  Serious: Yes (Hospitalization)
  Sender: FDA-Public Use
  Company Number: DE-OTSUKA-2016_028504

PATIENT
  Age: 47 Year
  Sex: Female

DRUGS (15)
  1. TOLVAPTAN [Suspect]
     Active Substance: TOLVAPTAN
     Dosage: 45 MG, QD (IN MORNING)
     Route: 065
     Dates: start: 20170121, end: 20170612
  2. TOLVAPTAN [Suspect]
     Active Substance: TOLVAPTAN
     Dosage: 30 MG, QD (IN EVENING)
     Route: 065
  3. TOLVAPTAN [Suspect]
     Active Substance: TOLVAPTAN
     Dosage: 30 MG, QD (IN EVENING)
     Route: 065
     Dates: start: 20170704
  4. L-THYROX [Concomitant]
     Active Substance: LEVOTHYROXINE SODIUM
     Indication: THYROID DISORDER
     Dosage: 75 ?G, QD (1-0-0)
     Route: 065
  5. POTASSIUM [Concomitant]
     Active Substance: POTASSIUM
     Indication: PRODUCT USED FOR UNKNOWN INDICATION
     Dosage: UNK, QD (1-0-0) FIZZY TABLET
     Route: 065
  6. NATRILIX [Concomitant]
     Active Substance: INDAPAMIDE
     Dosage: 1.5 MG, (1-0-1) (EVERY TWO DAYS)
     Route: 065
  7. TOLVAPTAN [Suspect]
     Active Substance: TOLVAPTAN
     Indication: CONGENITAL CYSTIC KIDNEY DISEASE
     Dosage: 45 MG, QD (IN MORNING)
     Route: 065
     Dates: start: 20161125
  8. CARMEN [Concomitant]
     Active Substance: LERCANIDIPINE
     Indication: CONGENITAL CYSTIC KIDNEY DISEASE
     Dosage: UNK, BID (1-0-1)
     Route: 065
  9. NATRILIX [Concomitant]
     Active Substance: INDAPAMIDE
     Indication: CONGENITAL CYSTIC KIDNEY DISEASE
     Dosage: 1.5 MG, BID (1-0-1)
     Route: 065
  10. TOLVAPTAN [Suspect]
     Active Substance: TOLVAPTAN
     Dosage: 60 MG, QD (IN MORNING)
     Route: 065
  11. TOLVAPTAN [Suspect]
     Active Substance: TOLVAPTAN
     Dosage: 15 MG, QOD (IN AFTERNOON OF EVERY 2ND DAY)
     Route: 065
     Dates: start: 20170121, end: 20170612
  12. NATRILIX [Concomitant]
     Active Substance: INDAPAMIDE
     Dosage: 3 MG, QD
     Route: 065
  13. PERINDOPRIL [Concomitant]
     Active Substance: PERINDOPRIL
     Indication: CONGENITAL CYSTIC KIDNEY DISEASE
     Dosage: 8 MG, QD
     Route: 065
  14. TOLVAPTAN [Suspect]
     Active Substance: TOLVAPTAN
     Dosage: 15 MG, QD (IN EVENING)
     Route: 065
     Dates: start: 20161125
  15. TOLVAPTAN [Suspect]
     Active Substance: TOLVAPTAN
     Dosage: 60 MG, QD (IN MORNING)
     Route: 065
     Dates: start: 20170704

REACTIONS (26)
  - Disease progression [Not Recovered/Not Resolved]
  - Crying [Not Recovered/Not Resolved]
  - Nasopharyngitis [Recovering/Resolving]
  - Headache [Recovered/Resolved]
  - Fluid imbalance [Recovered/Resolved]
  - Blepharospasm [Not Recovered/Not Resolved]
  - Rash pruritic [Recovered/Resolved]
  - Thirst [Not Recovered/Not Resolved]
  - Polydipsia [Not Recovered/Not Resolved]
  - Pollakiuria [Not Recovered/Not Resolved]
  - Abdominal discomfort [Not Recovered/Not Resolved]
  - Urinary tract infection [Recovered/Resolved]
  - Chronic kidney disease [Not Recovered/Not Resolved]
  - Syncope [Recovered/Resolved]
  - Insomnia [Not Recovered/Not Resolved]
  - Mental fatigue [Not Recovered/Not Resolved]
  - Paraesthesia oral [Not Recovered/Not Resolved]
  - Hypokalaemia [Recovered/Resolved]
  - Drug dose omission [Unknown]
  - Respiratory tract infection [Recovering/Resolving]
  - Swelling [Recovered/Resolved]
  - Fatigue [Not Recovered/Not Resolved]
  - Family stress [Not Recovered/Not Resolved]
  - Malaise [Recovered/Resolved]
  - Nocturia [Not Recovered/Not Resolved]
  - Therapy cessation [Unknown]

NARRATIVE: CASE EVENT DATE: 20161125
